FAERS Safety Report 6615193-5 (Version None)
Quarter: 2010Q1

REPORT INFORMATION
  Report Type: 
  Country: None (occurrence: None)
  Receive Date: 20100305
  Receipt Date: 20100301
  Transmission Date: 20100710
  Serious: Yes (Death, Hospitalization)
  Sender: FDA-Public Use
  Company Number: PHHY2009JP59127

PATIENT
  Sex: Female

DRUGS (5)
  1. ZOLEDRONATE T29581+ [Suspect]
     Indication: METASTASES TO BONE
     Dosage: 4 MG, TIW
     Route: 042
     Dates: start: 20070508, end: 20071207
  2. ROPION [Concomitant]
     Dosage: 100 MG, UNK
     Dates: start: 20071208, end: 20071217
  3. LOXONIN [Concomitant]
     Dosage: 180 MG, UNK
     Route: 048
     Dates: start: 20070508, end: 20071207
  4. DUROTEP [Concomitant]
     Dosage: 2.5 MG, UNK
     Route: 062
     Dates: start: 20071126, end: 20071217
  5. TAMOXIFEN CITRATE [Concomitant]
     Dosage: 20 MG, UNK
     Route: 048
     Dates: start: 20070508, end: 20071130

REACTIONS (2)
  - BRAIN COMPRESSION [None]
  - RESPIRATORY FAILURE [None]
